FAERS Safety Report 5787268-4 (Version None)
Quarter: 2008Q2

REPORT INFORMATION
  Report Type: 
  Country: None (occurrence: None)
  Receive Date: 20080618
  Receipt Date: 20080604
  Transmission Date: 20081010
  Serious: Yes (Other)
  Sender: FDA-Public Use
  Company Number: 803303

PATIENT
  Sex: Male

DRUGS (8)
  1. KEPPRA [Suspect]
     Indication: AFFECTIVE DISORDER
     Dosage: 1250 MG /D PO
     Route: 048
     Dates: start: 20050301, end: 20060101
  2. KEPPRA [Suspect]
     Indication: BIPOLAR DISORDER
     Dosage: 1250 MG /D PO
     Route: 048
     Dates: start: 20050301, end: 20060101
  3. KEPPRA [Suspect]
     Indication: AFFECTIVE DISORDER
     Dosage: 1500 MG /D PO
     Route: 048
     Dates: start: 20060101
  4. KEPPRA [Suspect]
     Indication: BIPOLAR DISORDER
     Dosage: 1500 MG /D PO
     Route: 048
     Dates: start: 20060101
  5. LAMICTAL [Concomitant]
  6. LIPITOR [Concomitant]
  7. VISTARIL [Concomitant]
  8. MINOCYCLINE HCL [Concomitant]

REACTIONS (3)
  - DEVELOPMENTAL DELAY [None]
  - MATERNAL DRUGS AFFECTING FOETUS [None]
  - SPEECH DISORDER DEVELOPMENTAL [None]
